FAERS Safety Report 5626873-2 (Version None)
Quarter: 2008Q1

REPORT INFORMATION
  Report Type: 
  Country: None (occurrence: None)
  Receive Date: 20080214
  Receipt Date: 20080208
  Transmission Date: 20080703
  Serious: Yes (Hospitalization, Other)
  Sender: FDA-Public Use
  Company Number: JP-MERCK-0710USA03892

PATIENT
  Age: 83 Year
  Sex: Male

DRUGS (6)
  1. PEPCID RPD [Suspect]
     Route: 048
     Dates: start: 20050101, end: 20070101
  2. LIPITOR [Suspect]
     Indication: HYPERCHOLESTEROLAEMIA
     Route: 048
     Dates: start: 20010601, end: 20071015
  3. GASMOTIN [Concomitant]
     Route: 048
  4. URSO 250 [Concomitant]
     Route: 048
  5. MUCOSTA [Concomitant]
     Route: 048
  6. PERSANTINE [Concomitant]
     Route: 048

REACTIONS (7)
  - BLOOD CREATINE PHOSPHOKINASE INCREASED [None]
  - COLONIC POLYP [None]
  - DEHYDRATION [None]
  - GASTRIC POLYPS [None]
  - HYPOKALAEMIA [None]
  - MYALGIA [None]
  - MYOPATHY [None]
